FAERS Safety Report 19221201 (Version 4)
Quarter: 2021Q3

REPORT INFORMATION
  Report Type: Spontaneous
  Country: GB (occurrence: GB)
  Receive Date: 20210506
  Receipt Date: 20210804
  Transmission Date: 20211014
  Serious: Yes (Death, Hospitalization, Other)
  Sender: FDA-Public Use
  Company Number: GB-BRISTOL-MYERS SQUIBB COMPANY-BMS-2021-027935

PATIENT
  Age: 18 Year
  Sex: Male

DRUGS (3)
  1. NIVOLUMAB [Suspect]
     Active Substance: NIVOLUMAB
     Indication: CYTOGENETIC ANALYSIS
     Dosage: 240 MILLIGRAM, Q2WK
     Route: 042
     Dates: start: 20210115, end: 20210226
  2. NIVOLUMAB [Suspect]
     Active Substance: NIVOLUMAB
     Indication: GLIOBLASTOMA
  3. LEVETIRACETAM. [Concomitant]
     Active Substance: LEVETIRACETAM
     Indication: SEIZURE
     Dosage: 750 MILLIGRAM, BID
     Route: 048
     Dates: start: 202009

REACTIONS (5)
  - Tumour haemorrhage [Not Recovered/Not Resolved]
  - Malignant neoplasm progression [Fatal]
  - Intraventricular haemorrhage [Unknown]
  - Seizure [Recovered/Resolved]
  - Intentional product use issue [Unknown]

NARRATIVE: CASE EVENT DATE: 20210117
